FAERS Safety Report 9713969 (Version 1)
Quarter: 2013Q4

REPORT INFORMATION
  Report Type: Spontaneous
  Country: US (occurrence: US)
  Receive Date: 20131126
  Receipt Date: 20131126
  Transmission Date: 20140711
  Serious: No
  Sender: FDA-Public Use
  Company Number: US-GILEAD-2008-0018326

PATIENT
  Sex: Female
  Weight: 72.57 kg

DRUGS (8)
  1. LETAIRIS [Suspect]
     Indication: PULMONARY ARTERIAL HYPERTENSION
     Route: 048
     Dates: start: 20080924
  2. AFRIN [Concomitant]
  3. CELEBREX [Concomitant]
  4. LASIX [Concomitant]
  5. DILAUDID [Concomitant]
  6. LOVENOX [Concomitant]
  7. LEVOTHROID [Concomitant]
  8. KLOR-CON [Concomitant]

REACTIONS (2)
  - Hiccups [None]
  - Nasal congestion [None]
